FAERS Safety Report 6220363-4 (Version None)
Quarter: 2009Q2

REPORT INFORMATION
  Report Type: 
  Country: None (occurrence: None)
  Receive Date: 20090610
  Receipt Date: 20090528
  Transmission Date: 20091009
  Serious: Yes (Other)
  Sender: FDA-Public Use
  Company Number: US-PFIZER INC-2006050089

PATIENT
  Sex: Female

DRUGS (6)
  1. PROVERA [Suspect]
     Indication: HORMONE REPLACEMENT THERAPY
     Dosage: 2.5 MG, UNK
     Route: 048
     Dates: start: 19920101, end: 19940101
  2. PREMARIN [Suspect]
     Indication: HORMONE REPLACEMENT THERAPY
     Dosage: 1.25 MG, UNK
     Dates: start: 19970101, end: 20020101
  3. PREMARIN [Suspect]
     Dosage: 0.625 MG, UNK
     Dates: start: 19970101, end: 20020101
  4. TOPROL-XL [Concomitant]
     Indication: CARDIAC DISORDER
     Dosage: UNK
     Dates: start: 19920101
  5. NORVASC [Concomitant]
     Indication: HYPERTENSION
     Dosage: UNK
     Dates: start: 19990101
  6. DOXAZOSIN [Concomitant]
     Indication: HYPERTENSION
     Dosage: UNK
     Dates: start: 19990101

REACTIONS (1)
  - BREAST CANCER [None]
